FAERS Safety Report 5887692-5 (Version None)
Quarter: 2008Q3

REPORT INFORMATION
  Report Type: 
  Country: None (occurrence: None)
  Receive Date: 20080916
  Receipt Date: 20080916
  Transmission Date: 20090109
  Serious: Yes (Hospitalization)
  Sender: FDA-Public Use
  Company Number: None

PATIENT
  Age: 72 Year
  Sex: Female
  Weight: 54 kg

DRUGS (1)
  1. TIKOSYN [Suspect]
     Indication: ARRHYTHMIA
     Dosage: 250 MG ONCE PO
     Route: 048
     Dates: start: 20080518

REACTIONS (2)
  - UNEVALUABLE EVENT [None]
  - VENTRICULAR TACHYCARDIA [None]
